FAERS Safety Report 23628182 (Version 1)
Quarter: 2024Q1

REPORT INFORMATION
  Report Type: Spontaneous
  Country: CH (occurrence: CH)
  Receive Date: 20240313
  Receipt Date: 20240313
  Transmission Date: 20240410
  Serious: Yes (Hospitalization)
  Sender: FDA-Public Use
  Company Number: None

PATIENT
  Age: 59 Year
  Sex: Female
  Weight: 46.5 kg

DRUGS (1)
  1. OLUMIANT [Suspect]
     Active Substance: BARICITINIB
     Indication: Dermatitis atopic
     Dosage: 2 MG, UNK
     Route: 065
     Dates: start: 202312, end: 20240208

REACTIONS (3)
  - Agranulocytosis [Recovered/Resolved]
  - Pancytopenia [Recovering/Resolving]
  - H1N1 influenza [Unknown]

NARRATIVE: CASE EVENT DATE: 20240207
